FAERS Safety Report 12401616 (Version 2)
Quarter: 2016Q2

REPORT INFORMATION
  Report Type: Spontaneous
  Country: US (occurrence: US)
  Receive Date: 20160525
  Receipt Date: 20160527
  Transmission Date: 20160815
  Serious: Yes (Other)
  Sender: FDA-Public Use
  Company Number: US-SA-2015SA173386

PATIENT
  Age: 79 Year
  Sex: Female

DRUGS (4)
  1. AMARYL [Suspect]
     Active Substance: GLIMEPIRIDE
     Indication: TYPE 2 DIABETES MELLITUS
     Route: 065
  2. LANTUS SOLOSTAR [Suspect]
     Active Substance: INSULIN GLARGINE
     Indication: TYPE 2 DIABETES MELLITUS
     Dosage: DOSE:12 UNIT(S)
     Route: 065
     Dates: start: 2014, end: 201508
  3. SOLOSTAR [Concomitant]
     Active Substance: DEVICE
     Dates: start: 2014, end: 201508
  4. AMARYL [Suspect]
     Active Substance: GLIMEPIRIDE
     Indication: TYPE 2 DIABETES MELLITUS
     Route: 065
     Dates: start: 201508

REACTIONS (5)
  - Mobility decreased [Unknown]
  - Loss of consciousness [Unknown]
  - Blood glucose decreased [Unknown]
  - Aphasia [Unknown]
  - Glycosylated haemoglobin increased [Unknown]

NARRATIVE: CASE EVENT DATE: 201508
